FAERS Safety Report 21699871 (Version 1)
Quarter: 2022Q4

REPORT INFORMATION
  Report Type: Spontaneous
  Country: FR (occurrence: FR)
  Receive Date: 20221208
  Receipt Date: 20221208
  Transmission Date: 20230113
  Serious: Yes (Life-Threatening)
  Sender: FDA-Public Use
  Company Number: None

PATIENT
  Age: 74 Year
  Sex: Female
  Weight: 64 kg

DRUGS (4)
  1. CLOPIDOGREL [Suspect]
     Active Substance: CLOPIDOGREL BISULFATE
     Indication: Thrombosis prophylaxis
     Dates: start: 202209, end: 20221005
  2. ELIQUIS [Suspect]
     Active Substance: APIXABAN
     Indication: Atrial fibrillation
     Dosage: STRENGTH: 5 MG
     Dates: end: 20221005
  3. KARDEGIC [Suspect]
     Active Substance: ASPIRIN DL-LYSINE
     Indication: Thrombosis prophylaxis
     Dosage: STRENGTH: 75 MG, POWDER FOR ORAL SOLUTION IN SACHET-DOSE
  4. AMIODARONE [Concomitant]
     Active Substance: AMIODARONE
     Indication: Cardiogenic shock
     Dates: start: 202209

REACTIONS (2)
  - Anaemia [Recovered/Resolved]
  - Large intestinal haemorrhage [Recovered/Resolved]

NARRATIVE: CASE EVENT DATE: 20220916
